FAERS Safety Report 7003065-6 (Version None)
Quarter: 2010Q3

REPORT INFORMATION
  Report Type: 
  Country: None (occurrence: None)
  Receive Date: 20100920
  Receipt Date: 20100114
  Transmission Date: 20110219
  Serious: No
  Sender: FDA-Public Use
  Company Number: US-ASTRAZENECA-2010SE01777

PATIENT
  Age: 71 Year
  Sex: Male
  Weight: 70.3 kg

DRUGS (5)
  1. SEROQUEL XR [Suspect]
     Indication: ANXIETY
     Route: 048
     Dates: start: 20070101, end: 20090101
  2. SEROQUEL XR [Suspect]
     Indication: BIPOLAR I DISORDER
     Route: 048
     Dates: start: 20070101, end: 20090101
  3. CALTRATE [Concomitant]
     Indication: SPINAL COLUMN STENOSIS
  4. FOSAMAX [Concomitant]
     Indication: SPINAL COLUMN STENOSIS
  5. FIORECET [Concomitant]
     Indication: HEADACHE

REACTIONS (7)
  - ANXIETY [None]
  - DYSARTHRIA [None]
  - FALL [None]
  - FEELING DRUNK [None]
  - HEADACHE [None]
  - INCORRECT DOSE ADMINISTERED [None]
  - LETHARGY [None]
